FAERS Safety Report 4852451-9 (Version None)
Quarter: 2005Q4

REPORT INFORMATION
  Report Type: 
  Country: None (occurrence: None)
  Receive Date: 20051213
  Receipt Date: 20051019
  Transmission Date: 20060501
  Serious: Yes (Other)
  Sender: FDA-Public Use
  Company Number: PHEH2005US11683

PATIENT
  Age: 53 Year
  Sex: Female

DRUGS (9)
  1. ZELNORM [Suspect]
     Indication: CONSTIPATION
     Dosage: 6 MG, BID
     Route: 048
     Dates: start: 20050601
  2. DILTIAZEM HCL [Concomitant]
  3. GEMFIBROZIL [Concomitant]
  4. BENAZEPRIL HCL [Concomitant]
  5. PREMARIN [Concomitant]
  6. ZANTAC [Concomitant]
  7. M.V.I. [Concomitant]
  8. LEVOXYL [Concomitant]
  9. ASPIRIN [Concomitant]

REACTIONS (2)
  - HEART RATE INCREASED [None]
  - SUPRAVENTRICULAR EXTRASYSTOLES [None]
